FAERS Safety Report 22162842 (Version 1)
Quarter: 2023Q1

REPORT INFORMATION
  Report Type: Spontaneous
  Country: US (occurrence: US)
  Receive Date: 20230331
  Receipt Date: 20230331
  Transmission Date: 20230417
  Serious: Yes (Hospitalization)
  Sender: FDA-Public Use
  Company Number: US-BoehringerIngelheim-2023-BI-228876

PATIENT
  Age: 54 Year
  Sex: Male

DRUGS (1)
  1. JARDIANCE [Suspect]
     Active Substance: EMPAGLIFLOZIN
     Indication: Product used for unknown indication
     Route: 048
     Dates: start: 20230310

REACTIONS (2)
  - Blood glucose increased [Recovered/Resolved]
  - Abscess limb [Recovered/Resolved]

NARRATIVE: CASE EVENT DATE: 20230310
